FAERS Safety Report 12487774 (Version 4)
Quarter: 2017Q3

REPORT INFORMATION
  Report Type: Spontaneous
  Country: FR (occurrence: FR)
  Receive Date: 20160622
  Receipt Date: 20170823
  Transmission Date: 20171127
  Serious: Yes (Other)
  Sender: FDA-Public Use
  Company Number: FR-009507513-1606FRA007399

PATIENT
  Age: 58 Year
  Sex: Male

DRUGS (2)
  1. STRUCTOFLEX [Concomitant]
     Active Substance: GLUCOSAMINE
     Dosage: UNK
  2. KEYTRUDA [Suspect]
     Active Substance: PEMBROLIZUMAB
     Indication: METASTATIC MALIGNANT MELANOMA
     Dosage: 190 MG, CYCLICAL
     Route: 042
     Dates: start: 20150829

REACTIONS (2)
  - Psoriasis [Recovered/Resolved]
  - Erectile dysfunction [Recovered/Resolved]

NARRATIVE: CASE EVENT DATE: 201512
